FAERS Safety Report 10693731 (Version 3)
Quarter: 2015Q1

REPORT INFORMATION
  Report Type: Spontaneous
  Country: US (occurrence: US)
  Receive Date: 20150106
  Receipt Date: 20150116
  Transmission Date: 20150721
  Serious: Yes (Other)
  Sender: FDA-Public Use
  Company Number: US-BAYER-2015-001011

PATIENT
  Age: 28 Year
  Sex: Female
  Weight: 48.98 kg

DRUGS (1)
  1. MIRENA [Suspect]
     Active Substance: LEVONORGESTREL
     Indication: CONTRACEPTION
     Dosage: 20 MCG/24HR, CONT
     Route: 015
     Dates: start: 20141208, end: 20150105

REACTIONS (16)
  - Stress [None]
  - Anxiety [None]
  - Insomnia [Recovered/Resolved]
  - Nervousness [None]
  - Feeling abnormal [None]
  - Personality change [None]
  - Mood swings [None]
  - Irritability [None]
  - Dizziness [None]
  - Panic attack [None]
  - Abdominal pain lower [None]
  - Malaise [None]
  - Weight decreased [None]
  - Depression [None]
  - Genital haemorrhage [Not Recovered/Not Resolved]
  - Depressed mood [None]

NARRATIVE: CASE EVENT DATE: 201412
